FAERS Safety Report 5202215-1 (Version None)
Quarter: 2006Q4

REPORT INFORMATION
  Report Type: 
  Country: None (occurrence: None)
  Receive Date: 20061010
  Receipt Date: 20060209
  Transmission Date: 20070319
  Serious: Yes (Death)
  Sender: FDA-Public Use
  Company Number: 2006P1000112

PATIENT
  Age: 69 Year
  Sex: Male

DRUGS (19)
  1. RETEPLASE (RETEPLASE) [Suspect]
     Indication: ACUTE MYOCARDIAL INFARCTION
     Dosage: X2;IV
     Route: 042
     Dates: start: 20060125
  2. ABCIXIMAB (ABCIXIMAB) [Suspect]
     Indication: ACUTE MYOCARDIAL INFARCTION
     Dosage: IV
     Route: 042
     Dates: start: 20060125, end: 20060125
  3. ASPIRIN [Concomitant]
  4. CLOPIDOGREL [Concomitant]
  5. ORGANIC NITRATES [Concomitant]
  6. MORPHINE [Concomitant]
  7. METOPROLOL SUCCINATE [Concomitant]
  8. GLYBURIDE [Concomitant]
  9. VERAPAMIL [Concomitant]
  10. DIGOXIN [Concomitant]
  11. METFORMIN HCL [Concomitant]
  12. IBUPROFEN [Concomitant]
  13. ALL OTHER THERAPEUTIC PRODUCTS [Concomitant]
  14. METHENAMINE [Concomitant]
  15. MIRTAZAPINE [Concomitant]
  16. TRAMADOL HCL [Concomitant]
  17. NITRAZEPAM [Concomitant]
  18. DIAZEPAM [Concomitant]
  19. MORPHINE [Concomitant]

REACTIONS (1)
  - VENTRICULAR FIBRILLATION [None]
